FAERS Safety Report 22952726 (Version 3)
Quarter: 2023Q4

REPORT INFORMATION
  Report Type: Report from Study
  Country: US (occurrence: US)
  Receive Date: 20230918
  Receipt Date: 20231206
  Transmission Date: 20240110
  Serious: Yes (Hospitalization)
  Sender: FDA-Public Use
  Company Number: US-ABBVIE-5341884

PATIENT
  Sex: Female

DRUGS (4)
  1. HUMIRA [Suspect]
     Active Substance: ADALIMUMAB
     Indication: Crohn^s disease
     Dosage: FORM STRENGTH: 40 MG,CITRATE FREE?LAST ADMIN DATE: JUN 2023,?LOADING DOSE
     Route: 058
     Dates: start: 20230614
  2. HUMIRA [Suspect]
     Active Substance: ADALIMUMAB
     Dosage: FORM STRENGTH: 40 MG,?CITRATE FREE, LAST ADMIN DATE: 2023
     Route: 058
     Dates: start: 20230616
  3. HUMIRA [Suspect]
     Active Substance: ADALIMUMAB
     Dosage: FORM STRENGTH: 40 MG,?CITRATE FREE,?INCREASED TO WEEKLY INJECTIONS. FIRST AND LAST ADMIN DATE: 2023
     Route: 058
  4. HUMIRA [Suspect]
     Active Substance: ADALIMUMAB
     Dosage: FORM STRENGTH: 40 MG,?CITRATE FREE,?MAINTENANCE DOSE, LAST ADMIN DATE: 2023
     Route: 058
     Dates: start: 20230714

REACTIONS (11)
  - Crohn^s disease [Not Recovered/Not Resolved]
  - Inflammatory marker increased [Not Recovered/Not Resolved]
  - Abdominal pain upper [Recovered/Resolved]
  - Fatigue [Not Recovered/Not Resolved]
  - Abdominal discomfort [Not Recovered/Not Resolved]
  - Drug ineffective [Not Recovered/Not Resolved]
  - Gastrointestinal sounds abnormal [Unknown]
  - Drug level decreased [Unknown]
  - Asthenia [Unknown]
  - Dizziness [Unknown]
  - Inflammation [Not Recovered/Not Resolved]

NARRATIVE: CASE EVENT DATE: 20230101
